FAERS Safety Report 11290691 (Version 4)
Quarter: 2015Q3

REPORT INFORMATION
  Report Type: Spontaneous
  Country: IT (occurrence: None)
  Receive Date: 20150720
  Receipt Date: 20150820
  Transmission Date: 20151125
  Serious: Yes (Hospitalization)
  Sender: FDA-Public Use
  Company Number: NL01PV15_39314

PATIENT
  Age: 70 Year
  Sex: Female

DRUGS (6)
  1. COUMADIN [Concomitant]
     Active Substance: WARFARIN SODIUM
  2. ATORVASTATIN (ATORVASTATIN) [Concomitant]
     Active Substance: ATORVASTATIN
  3. ZOLPIDEM [Suspect]
     Active Substance: ZOLPIDEM\ZOLPIDEM TARTRATE
     Indication: PRODUCT USED FOR UNKNOWN INDICATION
     Route: 048
     Dates: start: 20150627, end: 20150627
  4. OLMESARTAN MEDOXOMIL (OLMESARTAN MEDOXOMIL [Concomitant]
  5. LASIX [Concomitant]
     Active Substance: FUROSEMIDE
  6. LANSOX (LANSOPRAZOLE) [Concomitant]
     Active Substance: LANSOPRAZOLE

REACTIONS (7)
  - Drug abuse [None]
  - Hyperaemia [None]
  - Intentional self-injury [None]
  - Incorrect dose administered [None]
  - Somnolence [None]
  - Toxicity to various agents [None]
  - Blood pressure systolic increased [None]

NARRATIVE: CASE EVENT DATE: 20150627
